FAERS Safety Report 6988548-7 (Version None)
Quarter: 2010Q3

REPORT INFORMATION
  Report Type: 
  Country: None (occurrence: None)
  Receive Date: 20100916
  Receipt Date: 20100903
  Transmission Date: 20110219
  Serious: Yes (Hospitalization)
  Sender: FDA-Public Use
  Company Number: US-ELI_LILLY_AND_COMPANY-US201009002580

PATIENT
  Sex: Female
  Weight: 68.934 kg

DRUGS (9)
  1. ZYPREXA [Suspect]
     Indication: HALLUCINATION
     Dosage: 5 MG, 2/D
     Route: 048
  2. CARDIAZEM [Concomitant]
     Indication: BLOOD PRESSURE
  3. LOVASTATIN [Concomitant]
     Indication: HYPERTENSION
  4. METFORMIN [Concomitant]
     Indication: DIABETES MELLITUS
  5. AMITRIPTYLINE HCL [Concomitant]
     Indication: DEPRESSION
  6. STALEVO 100 [Concomitant]
     Indication: PARKINSON'S DISEASE
  7. ASPIRIN [Concomitant]
     Indication: PROPHYLAXIS
  8. VITAMIN B-12 [Concomitant]
     Indication: PREMEDICATION
     Dates: end: 20100618
  9. DEXAMETHASONE [Concomitant]
     Indication: PREMEDICATION
     Dates: start: 20100618, end: 20100810

REACTIONS (11)
  - ATAXIA [None]
  - BLOOD CHLORIDE DECREASED [None]
  - BLOOD POTASSIUM DECREASED [None]
  - BLOOD SODIUM DECREASED [None]
  - DELIRIUM [None]
  - HAEMATOCRIT DECREASED [None]
  - HAEMOGLOBIN DECREASED [None]
  - POTENTIATING DRUG INTERACTION [None]
  - PSYCHOTIC DISORDER [None]
  - RED BLOOD CELL COUNT DECREASED [None]
  - THERAPEUTIC RESPONSE DECREASED [None]
